FAERS Safety Report 6068243-1 (Version None)
Quarter: 2009Q1

REPORT INFORMATION
  Report Type: 
  Country: None (occurrence: None)
  Receive Date: 20090206
  Receipt Date: 20090126
  Transmission Date: 20090719
  Serious: Yes (Disabling, Other)
  Sender: FDA-Public Use
  Company Number: PHHY2009CO02567

PATIENT
  Sex: Female

DRUGS (3)
  1. VOLTAREN [Suspect]
     Indication: IRIDOCYCLITIS
     Dosage: UNK, 3 TIMES PER DAY
     Route: 061
     Dates: start: 20081004, end: 20090108
  2. ULTRACORTENOL (NVO) [Suspect]
     Indication: IRIDOCYCLITIS
     Dosage: UNK, 3 TIMES/DAY
     Route: 061
     Dates: start: 20081004, end: 20090108
  3. BRIMONIDINE [Concomitant]

REACTIONS (2)
  - CORNEAL DISORDER [None]
  - KERATOPLASTY [None]
